FAERS Safety Report 6988569-4 (Version None)
Quarter: 2010Q3

REPORT INFORMATION
  Report Type: 
  Country: None (occurrence: None)
  Receive Date: 20100827
  Receipt Date: 20100706
  Transmission Date: 20110219
  Serious: Yes (Other)
  Sender: FDA-Public Use
  Company Number: 015220

PATIENT
  Age: 40 Year
  Sex: Female

DRUGS (1)
  1. LACOSAMIDE [Suspect]
     Indication: GRAND MAL CONVULSION

REACTIONS (2)
  - OVERDOSE [None]
  - SUICIDE ATTEMPT [None]
